FAERS Safety Report 5096314-5 (Version None)
Quarter: 2006Q3

REPORT INFORMATION
  Report Type: 
  Country: None (occurrence: None)
  Receive Date: 20060905
  Receipt Date: 20060828
  Transmission Date: 20061208
  Serious: Yes (Other)
  Sender: FDA-Public Use
  Company Number: PHEH2006US11006

PATIENT
  Age: 59 Year
  Sex: Female
  Weight: 81.179 kg

DRUGS (8)
  1. ZOMETA [Suspect]
     Dosage: 4MG Q3WK
     Route: 042
     Dates: start: 20060626
  2. XELODA [Suspect]
     Indication: BREAST CANCER METASTATIC
     Dosage: 2150 MG (2 PER DAY)
     Route: 048
     Dates: start: 20060607
  3. ENALAPRIL [Concomitant]
  4. POTASSIUM [Concomitant]
  5. ZOLOFT [Concomitant]
  6. FOLIC ACID [Concomitant]
  7. VITAMIN B6 [Concomitant]
  8. ZYRTEC [Concomitant]

REACTIONS (8)
  - BENIGN INTRACRANIAL HYPERTENSION [None]
  - CATARACT NUCLEAR [None]
  - CEREBRAL VENOUS THROMBOSIS [None]
  - INTRAOCULAR PRESSURE INCREASED [None]
  - MACULOPATHY [None]
  - PAPILLOEDEMA [None]
  - VISUAL DISTURBANCE [None]
  - VITREOUS DETACHMENT [None]
